FAERS Safety Report 5495861-1 (Version None)
Quarter: 2007Q4

REPORT INFORMATION
  Report Type: 
  Country: None (occurrence: None)
  Receive Date: 20071025
  Receipt Date: 20061103
  Transmission Date: 20080405
  Serious: No
  Sender: FDA-Public Use
  Company Number: A0626149A

PATIENT
  Age: 61 Year
  Sex: Female

DRUGS (11)
  1. ADVAIR DISKUS 100/50 [Suspect]
     Indication: CHRONIC OBSTRUCTIVE PULMONARY DISEASE
     Dosage: 250MCG TWICE PER DAY
     Route: 055
     Dates: start: 20051201
  2. SPIRIVA [Concomitant]
  3. SINGULAIR [Concomitant]
  4. WELLBUTRIN [Concomitant]
  5. ALBUTEROL [Concomitant]
  6. OMEPRAZOLE [Concomitant]
  7. ZYRTEC [Concomitant]
  8. DITROPAN [Concomitant]
  9. NAPROXEN [Concomitant]
  10. UNKNOWN MEDICATION [Concomitant]
  11. NYSTATIN [Concomitant]

REACTIONS (4)
  - BONE DENSITOMETRY [None]
  - DRY MOUTH [None]
  - GLOSSODYNIA [None]
  - ORAL FUNGAL INFECTION [None]
